FAERS Safety Report 6020441-9 (Version None)
Quarter: 2008Q4

REPORT INFORMATION
  Report Type: 
  Country: None (occurrence: None)
  Receive Date: 20081226
  Receipt Date: 20081215
  Transmission Date: 20090506
  Serious: Yes (Other)
  Sender: FDA-Public Use
  Company Number: BR-ROCHE-603409

PATIENT
  Age: 28 Year
  Sex: Female
  Weight: 65 kg

DRUGS (3)
  1. ROACUTAN [Suspect]
     Indication: ACNE
     Route: 048
     Dates: start: 20080701
  2. ROACUTAN [Suspect]
     Dosage: DOSE DECREASED
     Route: 048
  3. PERLUTAN [Concomitant]
     Indication: CONTRACEPTION

REACTIONS (2)
  - GALACTORRHOEA [None]
  - HEADACHE [None]
